FAERS Safety Report 6458783-5 (Version None)
Quarter: 2009Q4

REPORT INFORMATION
  Report Type: 
  Country: None (occurrence: None)
  Receive Date: 20091127
  Receipt Date: 20091119
  Transmission Date: 20100525
  Serious: Yes (Other)
  Sender: FDA-Public Use
  Company Number: ES-ROCHE-670069

PATIENT
  Age: 15 Year
  Sex: Male

DRUGS (1)
  1. TAMIFLU [Suspect]
     Indication: H1N1 INFLUENZA
     Route: 048
     Dates: start: 20091018, end: 20091023

REACTIONS (1)
  - ENCEPHALOPATHY [None]
